FAERS Safety Report 5400232-X (Version None)
Quarter: 2007Q3

REPORT INFORMATION
  Report Type: 
  Country: None (occurrence: None)
  Receive Date: 20070727
  Receipt Date: 20070727
  Transmission Date: 20080115
  Serious: Yes (Life-Threatening, Hospitalization)
  Sender: FDA-Public Use
  Company Number: None

PATIENT
  Age: 93 Year
  Sex: Male

DRUGS (8)
  1. WARFARIN SODIUM [Suspect]
     Indication: ATRIAL FIBRILLATION
  2. ASPIRIN [Suspect]
  3. LUNESTA [Concomitant]
  4. METAMUCIL [Concomitant]
  5. LASIX [Concomitant]
  6. LEXAPRO [Concomitant]
  7. ATENOLOL [Concomitant]
  8. ALPHAGAN [Concomitant]

REACTIONS (4)
  - FALL [None]
  - INTERNATIONAL NORMALISED RATIO INCREASED [None]
  - PETECHIAE [None]
  - SUBARACHNOID HAEMORRHAGE [None]
